FAERS Safety Report 8274929-0 (Version None)
Quarter: 2012Q2

REPORT INFORMATION
  Report Type: 
  Country: None (occurrence: None)
  Receive Date: 20120411
  Receipt Date: 20120410
  Transmission Date: 20120825
  Serious: Yes (Death)
  Sender: FDA-Public Use
  Company Number: IT-JNJFOC-20120404326

PATIENT
  Age: 35 Year
  Sex: Female

DRUGS (1)
  1. OXYMETAZOLINE HCL [Suspect]
     Indication: NASAL DISORDER
     Route: 065

REACTIONS (2)
  - AORTIC ANEURYSM RUPTURE [None]
  - CARDIAC TAMPONADE [None]
